FAERS Safety Report 14139514 (Version 4)
Quarter: 2018Q2

REPORT INFORMATION
  Report Type: Report from Study
  Country: US (occurrence: US)
  Receive Date: 20171028
  Receipt Date: 20180501
  Transmission Date: 20180711
  Serious: Yes (Other)
  Sender: FDA-Public Use
  Company Number: US-AMGEN-USASL2017160454

PATIENT
  Age: 61 Year
  Sex: Female

DRUGS (2)
  1. INSULIN [Concomitant]
     Active Substance: INSULIN NOS
     Dosage: UNK
  2. REPATHA [Suspect]
     Active Substance: EVOLOCUMAB
     Indication: HYPERCHOLESTEROLAEMIA
     Dosage: 140 MG, Q2WK
     Route: 065

REACTIONS (9)
  - Confusional state [Unknown]
  - Blood triglycerides increased [Unknown]
  - Animal scratch [Unknown]
  - Mental disability [Unknown]
  - Feeling abnormal [Unknown]
  - Depression [Unknown]
  - Glycosylated haemoglobin increased [Unknown]
  - Blood count abnormal [Unknown]
  - Blood glucose increased [Unknown]
